FAERS Safety Report 11897315 (Version 20)
Quarter: 2016Q4

REPORT INFORMATION
  Report Type: Report from Study
  Country: CA (occurrence: CA)
  Receive Date: 20160108
  Receipt Date: 20161219
  Transmission Date: 20170206
  Serious: Yes (Other)
  Sender: FDA-Public Use
  Company Number: CA-ROCHE-1691132

PATIENT
  Age: 64 Year
  Sex: Male
  Weight: 90 kg

DRUGS (23)
  1. FOLIC ACID. [Concomitant]
     Active Substance: FOLIC ACID
  2. KETODERM (CANADA) [Concomitant]
  3. HUMIRA [Concomitant]
     Active Substance: ADALIMUMAB
  4. CELEBREX [Concomitant]
     Active Substance: CELECOXIB
     Indication: PAIN
  5. ACTEMRA [Suspect]
     Active Substance: TOCILIZUMAB
     Route: 042
     Dates: start: 20161214
  6. NOVO-METHACIN [Concomitant]
  7. CALCITE D [Concomitant]
     Active Substance: CALCIUM CARBONATE
  8. NOVO-PREDNISONE [Concomitant]
     Active Substance: PREDNISONE
  9. VITAMIN B12 [Concomitant]
     Active Substance: CYANOCOBALAMIN
  10. AMLODIPINE [Concomitant]
     Active Substance: AMLODIPINE BESYLATE
  11. PANTOPRAZOLE [Concomitant]
     Active Substance: PANTOPRAZOLE SODIUM
  12. ALENDRONATE [Concomitant]
     Active Substance: ALENDRONATE SODIUM
  13. AVAPRO [Concomitant]
     Active Substance: IRBESARTAN
  14. METHOTREXATE. [Concomitant]
     Active Substance: METHOTREXATE
  15. SALAZOPYRIN [Concomitant]
     Active Substance: SULFASALAZINE
  16. PREDNISONE. [Suspect]
     Active Substance: PREDNISONE
     Indication: PRODUCT USED FOR UNKNOWN INDICATION
     Route: 065
  17. CORTISONE [Suspect]
     Active Substance: CORTISONE\HYDROCORTISONE
     Indication: PRODUCT USED FOR UNKNOWN INDICATION
     Route: 048
     Dates: end: 20161130
  18. SYNTHROID [Concomitant]
     Active Substance: LEVOTHYROXINE SODIUM
  19. ACTEMRA [Suspect]
     Active Substance: TOCILIZUMAB
     Indication: RHEUMATOID ARTHRITIS
     Route: 042
     Dates: start: 20151217
  20. ACTEMRA [Suspect]
     Active Substance: TOCILIZUMAB
     Route: 042
     Dates: start: 20161114
  21. PREDNISONE. [Suspect]
     Active Substance: PREDNISONE
     Route: 048
  22. PREGABALIN. [Concomitant]
     Active Substance: PREGABALIN
  23. VOLTAREN [Concomitant]
     Active Substance: DICLOFENAC SODIUM

REACTIONS (23)
  - Chest pain [Unknown]
  - Pain [Recovering/Resolving]
  - Cataract [Not Recovered/Not Resolved]
  - Oxygen saturation decreased [Unknown]
  - Rheumatoid arthritis [Unknown]
  - Pain in extremity [Not Recovered/Not Resolved]
  - Swelling [Not Recovered/Not Resolved]
  - Arthralgia [Recovering/Resolving]
  - Chest pain [Not Recovered/Not Resolved]
  - Oxygen saturation decreased [Unknown]
  - Back pain [Not Recovered/Not Resolved]
  - Pain [Not Recovered/Not Resolved]
  - Fatigue [Unknown]
  - Dyspnoea [Unknown]
  - Arthralgia [Not Recovered/Not Resolved]
  - Coccydynia [Not Recovered/Not Resolved]
  - Rash [Not Recovered/Not Resolved]
  - Blood pressure systolic increased [Unknown]
  - Chest pain [Not Recovered/Not Resolved]
  - Mobility decreased [Unknown]
  - Therapeutic response decreased [Not Recovered/Not Resolved]
  - Erythema [Not Recovered/Not Resolved]
  - Immobile [Unknown]

NARRATIVE: CASE EVENT DATE: 2016
